FAERS Safety Report 8503144-8 (Version None)
Quarter: 2012Q3

REPORT INFORMATION
  Report Type: 
  Country: None (occurrence: None)
  Receive Date: 20120711
  Receipt Date: 20120702
  Transmission Date: 20120928
  Serious: Yes (Hospitalization)
  Sender: FDA-Public Use
  Company Number: AT-ABBOTT-12P-009-0952978-00

PATIENT
  Age: 59 Year
  Sex: Male
  Weight: 50 kg

DRUGS (7)
  1. SEVELAMER [Suspect]
     Indication: HYPERPHOSPHATAEMIA
     Route: 048
     Dates: start: 20110307, end: 20120607
  2. ROCALTROL [Concomitant]
     Indication: HYPERPARATHYROIDISM
     Route: 048
     Dates: start: 20060322
  3. ZEMPLAR [Suspect]
     Indication: PRODUCT USED FOR UNKNOWN INDICATION
  4. CALCITRIOL [Concomitant]
     Indication: HYPERPARATHYROIDISM
     Route: 048
     Dates: start: 20060322
  5. CARVEDILOL [Concomitant]
     Indication: CARDIAC FAILURE
     Route: 048
     Dates: start: 20100517
  6. LASIX [Concomitant]
     Indication: PRODUCT USED FOR UNKNOWN INDICATION
     Route: 048
     Dates: start: 20090307
  7. CALC ACET [Concomitant]
     Indication: HYPERPHOSPHATAEMIA
     Route: 048
     Dates: start: 20090307

REACTIONS (5)
  - DIARRHOEA [None]
  - HYPERPHOSPHATAEMIA [None]
  - DYSPNOEA EXERTIONAL [None]
  - HYPOCALCAEMIA [None]
  - EMPHYSEMA [None]
